FAERS Safety Report 6026150-4 (Version None)
Quarter: 2008Q4

REPORT INFORMATION
  Report Type: 
  Country: None (occurrence: None)
  Receive Date: 20081230
  Receipt Date: 20081216
  Transmission Date: 20090506
  Serious: Yes (Other)
  Sender: FDA-Public Use
  Company Number: 2008-04430

PATIENT
  Age: 66 Year
  Sex: Male
  Weight: 86.2 kg

DRUGS (12)
  1. VELCADE [Suspect]
     Indication: MULTIPLE MYELOMA
     Dosage: INTRAVENOUS
     Route: 042
     Dates: start: 20081110, end: 20081120
  2. MICARDIS [Concomitant]
  3. PRAVSTATIN SODIUM (PRAVASTATIN SODIUM) [Concomitant]
  4. ZOMETA [Concomitant]
  5. DEXAMETHASONE [Concomitant]
  6. OMEPRAZOLE [Concomitant]
  7. METOPROLOL TARTRATE [Concomitant]
  8. ASPIRIN [Concomitant]
  9. GLUTAMIC ACID HYDROCHLORIDE (GLUTAMIC ACID HYDROCHLORIDE) [Concomitant]
  10. COSOPT (TIMOLOL MALEASTE, DORZOLAMIDE HYDROCHLORIDE) [Concomitant]
  11. TEMAZEPAM [Concomitant]
  12. MINERAL TAB [Concomitant]

REACTIONS (13)
  - ABDOMINAL DISTENSION [None]
  - ARTHRALGIA [None]
  - DIARRHOEA [None]
  - DIZZINESS [None]
  - DYSPNOEA [None]
  - FALL [None]
  - MOBILITY DECREASED [None]
  - NEUROPATHY PERIPHERAL [None]
  - OEDEMA PERIPHERAL [None]
  - ORTHOSTATIC HYPOTENSION [None]
  - RASH [None]
  - SYNCOPE [None]
  - WEIGHT INCREASED [None]
